FAERS Safety Report 6660355-4 (Version None)
Quarter: 2010Q1

REPORT INFORMATION
  Report Type: 
  Country: None (occurrence: None)
  Receive Date: 20100331
  Receipt Date: 20100319
  Transmission Date: 20100710
  Serious: No
  Sender: FDA-Public Use
  Company Number: US-JNJFOC-20100306805

PATIENT
  Sex: Female
  Weight: 68.04 kg

DRUGS (2)
  1. FENTANYL-100 [Suspect]
     Indication: NERVE INJURY
     Route: 062
     Dates: start: 20070101, end: 20100301
  2. FENTANYL-100 [Suspect]
     Route: 062
     Dates: start: 20100301

REACTIONS (2)
  - DRUG ADMINISTERED AT INAPPROPRIATE SITE [None]
  - WRONG TECHNIQUE IN DRUG USAGE PROCESS [None]
